FAERS Safety Report 5767469-1 (Version None)
Quarter: 2008Q2

REPORT INFORMATION
  Report Type: 
  Country: None (occurrence: None)
  Receive Date: 20080611
  Receipt Date: 20080611
  Transmission Date: 20081010
  Serious: Yes (Other)
  Sender: FDA-Public Use
  Company Number: None

PATIENT
  Age: 15 Year
  Sex: Female
  Weight: 59.8748 kg

DRUGS (2)
  1. MAGNEVIST [Suspect]
     Indication: DIAGNOSTIC PROCEDURE
     Dosage: 0.1 ML  ONCE OTHER
     Route: 050
     Dates: start: 20060905, end: 20060905
  2. OMNIPAQUE 180 [Suspect]
     Dosage: 18 ML ONCE

REACTIONS (9)
  - CRYSTAL URINE PRESENT [None]
  - DIZZINESS [None]
  - DRUG INEFFECTIVE [None]
  - EYE PAIN [None]
  - HAEMATURIA [None]
  - HEADACHE [None]
  - HYPERACUSIS [None]
  - KIDNEY FIBROSIS [None]
  - RENAL DISORDER [None]
